FAERS Safety Report 12486558 (Version 1)
Quarter: 2016Q2

REPORT INFORMATION
  Report Type: Spontaneous
  Country: US (occurrence: US)
  Receive Date: 20160621
  Receipt Date: 20160621
  Transmission Date: 20160815
  Serious: Yes (Other)
  Sender: FDA-Public Use
  Company Number: US-BION-20160217

PATIENT
  Age: 71 Year
  Sex: Female
  Weight: 88.45 kg

DRUGS (5)
  1. OMEGA SUPPLEMENT [Concomitant]
  2. ALEVE [Suspect]
     Active Substance: NAPROXEN SODIUM
     Indication: ANALGESIC THERAPY
     Dosage: 1 DF TAKEN ONCE DAILY
     Route: 048
  3. METFORMIN [Concomitant]
     Active Substance: METFORMIN HYDROCHLORIDE
  4. PRESCRIBED MEDICATION FOR THYROID [Concomitant]
  5. HAWTHORN SUPPLEMENT [Concomitant]

REACTIONS (4)
  - Incorrect drug administration duration [Recovered/Resolved]
  - Emotional distress [None]
  - Myocardial infarction [Recovered/Resolved]
  - Chest pain [Recovered/Resolved]
